FAERS Safety Report 4806993-2 (Version None)
Quarter: 2005Q4

REPORT INFORMATION
  Report Type: 
  Country: None (occurrence: None)
  Receive Date: 20051024
  Receipt Date: 20051012
  Transmission Date: 20060501
  Serious: Yes (Other)
  Sender: FDA-Public Use
  Company Number: AU-JNJFOC-20051003330

PATIENT
  Age: 29 Year
  Sex: Female

DRUGS (4)
  1. INFLIXIMAB [Suspect]
     Route: 042
  2. INFLIXIMAB [Suspect]
     Route: 042
  3. INFLIXIMAB [Suspect]
     Route: 042
  4. INFLIXIMAB [Suspect]
     Indication: PSORIASIS
     Route: 042

REACTIONS (2)
  - DRUG EXPOSURE DURING PREGNANCY [None]
  - GLOMERULONEPHRITIS MEMBRANOUS [None]
